FAERS Safety Report 23764491 (Version 1)
Quarter: 2024Q2

REPORT INFORMATION
  Report Type: Spontaneous
  Country: US (occurrence: US)
  Receive Date: 20240420
  Receipt Date: 20240420
  Transmission Date: 20240716
  Serious: No
  Sender: FDA-Public Use
  Company Number: US-HALEON-2168418

PATIENT
  Sex: Male

DRUGS (1)
  1. STANNOUS FLUORIDE [Suspect]
     Active Substance: STANNOUS FLUORIDE
     Indication: Product used for unknown indication
     Route: 065

REACTIONS (2)
  - Gingival discomfort [Unknown]
  - Oral discomfort [Unknown]
